FAERS Safety Report 5789036-6 (Version None)
Quarter: 2008Q2

REPORT INFORMATION
  Report Type: 
  Country: None (occurrence: None)
  Receive Date: 20080626
  Receipt Date: 20080619
  Transmission Date: 20081010
  Serious: Yes (Other)
  Sender: FDA-Public Use
  Company Number: B0418407A

PATIENT
  Sex: Female

DRUGS (7)
  1. SEROXAT [Suspect]
     Route: 065
     Dates: start: 19990301
  2. CIPRAMIL [Concomitant]
     Route: 065
     Dates: start: 20020103
  3. NADOLOL [Concomitant]
     Indication: FLUSHING
     Dates: start: 19920101
  4. DOTHIEPIN HYDROCHLORIDE [Concomitant]
     Dates: start: 20050101
  5. MIRTAZAPINE [Concomitant]
     Dates: start: 20050101
  6. FLUOXETINE [Concomitant]
     Indication: DEPRESSION
     Dates: start: 20070731
  7. UNKNOWN DRUG [Concomitant]
     Dates: start: 20060101

REACTIONS (31)
  - ADVERSE DRUG REACTION [None]
  - AFFECT LABILITY [None]
  - AGGRESSION [None]
  - ANGER [None]
  - ANXIETY [None]
  - BALANCE DISORDER [None]
  - BINGE EATING [None]
  - BLADDER DISORDER [None]
  - CONDITION AGGRAVATED [None]
  - DEPRESSED MOOD [None]
  - DISTURBANCE IN ATTENTION [None]
  - DIZZINESS [None]
  - DYSPEPSIA [None]
  - HYPERHIDROSIS [None]
  - HYPOMANIA [None]
  - INTENTIONAL SELF-INJURY [None]
  - IRRITABILITY [None]
  - LOSS OF CONSCIOUSNESS [None]
  - MANIA [None]
  - MEMORY IMPAIRMENT [None]
  - MOOD SWINGS [None]
  - MUSCLE TWITCHING [None]
  - NAUSEA [None]
  - PARAESTHESIA [None]
  - PSYCHOMOTOR HYPERACTIVITY [None]
  - SUICIDAL BEHAVIOUR [None]
  - SUICIDAL IDEATION [None]
  - TEARFULNESS [None]
  - TREMOR [None]
  - WEIGHT INCREASED [None]
  - WITHDRAWAL SYNDROME [None]
